FAERS Safety Report 5885640-5 (Version None)
Quarter: 2008Q3

REPORT INFORMATION
  Report Type: 
  Country: None (occurrence: None)
  Receive Date: 20080916
  Receipt Date: 20080908
  Transmission Date: 20090109
  Serious: Yes (Other)
  Sender: FDA-Public Use
  Company Number: US-GILEAD-2008-0017208

PATIENT
  Sex: Female
  Weight: 88.893 kg

DRUGS (14)
  1. AMBRISENTAN [Suspect]
     Indication: PULMONARY ARTERIAL HYPERTENSION
     Route: 048
     Dates: start: 20080702, end: 20080704
  2. AMBRISENTAN [Suspect]
     Route: 048
     Dates: start: 20070907, end: 20080701
  3. AMBRISENTAN [Suspect]
     Route: 048
     Dates: start: 20070316, end: 20070906
  4. REVATIO [Concomitant]
     Route: 048
     Dates: start: 20060901
  5. WARFARIN SODIUM [Concomitant]
     Dates: start: 20061129
  6. HYDROCHLOROTHIAZIDE [Concomitant]
     Dates: start: 20051201
  7. ATENOLOL [Concomitant]
     Dates: start: 20080306
  8. ASPIRIN [Concomitant]
     Dates: start: 20060823
  9. CALCIUM + D [Concomitant]
     Dates: start: 20051212
  10. CENTRUM SILVER [Concomitant]
     Dates: start: 20051212
  11. CO Q10 [Concomitant]
     Dates: start: 20051212
  12. FISH OIL [Concomitant]
     Dates: start: 20051212
  13. GLUCOSAMINE [Concomitant]
     Dates: start: 20051212
  14. OCUVITE-LUTEIN [Concomitant]
     Dates: start: 20051212

REACTIONS (1)
  - HEPATIC ENZYME INCREASED [None]
